FAERS Safety Report 4487553-2 (Version None)
Quarter: 2004Q4

REPORT INFORMATION
  Report Type: 
  Country: None (occurrence: None)
  Receive Date: 20041028
  Receipt Date: 20041015
  Transmission Date: 20050328
  Serious: Yes (Hospitalization)
  Sender: FDA-Public Use
  Company Number: GB-JNJFOC-20041004797

PATIENT
  Sex: Male

DRUGS (9)
  1. REMICADE [Suspect]
     Indication: RHEUMATOID ARTHRITIS
     Route: 042
  2. METHOTREXATE [Concomitant]
  3. FOLIC ACID [Concomitant]
  4. CO-CODAMOL [Concomitant]
  5. CO-CODAMOL [Concomitant]
  6. FLUOXETINE [Concomitant]
  7. ASPIRIN [Concomitant]
  8. AMLODIPINE [Concomitant]
  9. LANSOPRAZOLE [Concomitant]

REACTIONS (2)
  - BACK PAIN [None]
  - OSTEOPOROSIS [None]
